FAERS Safety Report 5939851-0 (Version None)
Quarter: 2008Q4

REPORT INFORMATION
  Report Type: 
  Country: None (occurrence: None)
  Receive Date: 20081030
  Receipt Date: 20081030
  Transmission Date: 20090506
  Serious: Yes (Other)
  Sender: FDA-Public Use
  Company Number: None

PATIENT
  Sex: Female
  Weight: 55.2 kg

DRUGS (2)
  1. OXALIPLATIN [Suspect]
     Indication: BILE DUCT CANCER
     Dosage: 102 MG IV EVERY 2 WKS
     Route: 042
  2. SORAFENIB/BAYER/200 MG DAILY [Suspect]
     Indication: BILE DUCT CANCER
     Dosage: 200 MG DAILY

REACTIONS (2)
  - BILE DUCT CANCER [None]
  - MALIGNANT NEOPLASM PROGRESSION [None]
